FAERS Safety Report 25393519 (Version 1)
Quarter: 2025Q2

REPORT INFORMATION
  Report Type: Spontaneous
  Country: US (occurrence: US)
  Receive Date: 20250604
  Receipt Date: 20250604
  Transmission Date: 20250717
  Serious: Yes (Hospitalization, Other)
  Sender: ASTELLAS
  Company Number: US-ASTELLAS-2025-AER-028807

PATIENT
  Age: 25 Year
  Sex: Female
  Weight: 120 kg

DRUGS (7)
  1. TACROLIMUS [Suspect]
     Active Substance: TACROLIMUS
     Indication: Product used for unknown indication
     Route: 050
  2. LUPKYNIS [Suspect]
     Active Substance: VOCLOSPORIN
     Indication: Systemic lupus erythematosus
     Dosage: UNKNOWN
     Route: 048
     Dates: start: 202402, end: 20241118
  3. LUPKYNIS [Suspect]
     Active Substance: VOCLOSPORIN
     Indication: Lupus nephritis
  4. PLAQUENIL [Concomitant]
     Active Substance: HYDROXYCHLOROQUINE SULFATE
     Indication: Product used for unknown indication
     Route: 065
  5. PLAQUENIL [Concomitant]
     Active Substance: HYDROXYCHLOROQUINE SULFATE
     Route: 065
     Dates: start: 20250109
  6. CRISABOROLE [Concomitant]
     Active Substance: CRISABOROLE
     Indication: Product used for unknown indication
     Route: 061
     Dates: start: 20190530
  7. LOSARTAN [Concomitant]
     Active Substance: LOSARTAN
     Indication: Hypertension
     Dosage: 50 MG ONCE DAILY
     Route: 065
     Dates: end: 20240225

REACTIONS (22)
  - Thrombotic microangiopathy [Unknown]
  - Microangiopathic haemolytic anaemia [Unknown]
  - Evans syndrome [Not Recovered/Not Resolved]
  - Systemic lupus erythematosus [Not Recovered/Not Resolved]
  - Acute kidney injury [Not Recovered/Not Resolved]
  - End stage renal disease [Unknown]
  - Abortion threatened [Recovered/Resolved]
  - Blood pressure increased [Unknown]
  - Decreased appetite [Unknown]
  - Vomiting [Recovered/Resolved]
  - Fatigue [Unknown]
  - Urine abnormality [Unknown]
  - Chromaturia [Unknown]
  - Serositis [Recovered/Resolved]
  - Gait disturbance [Unknown]
  - Proteinuria [Not Recovered/Not Resolved]
  - Red blood cell sedimentation rate increased [Unknown]
  - Asthenia [Unknown]
  - Nausea [Recovered/Resolved]
  - Arthralgia [Unknown]
  - Diarrhoea [Not Recovered/Not Resolved]
  - Exposure during pregnancy [Unknown]

NARRATIVE: CASE EVENT DATE: 20240221
